FAERS Safety Report 15916545 (Version 2)
Quarter: 2019Q1

REPORT INFORMATION
  Report Type: Report from Study
  Country: None (occurrence: CA)
  Receive Date: 20190204
  Receipt Date: 20190221
  Transmission Date: 20190417
  Serious: No
  Sender: FDA-Public Use
  Company Number: CA-ABBVIE-19K-028-2650794-00

PATIENT
  Sex: Male

DRUGS (1)
  1. HUMIRA [Suspect]
     Active Substance: ADALIMUMAB
     Indication: CROHN^S DISEASE
     Route: 058
     Dates: start: 20170105

REACTIONS (3)
  - Large intestinal stenosis [Not Recovered/Not Resolved]
  - Drug effect incomplete [Unknown]
  - Gastrointestinal scarring [Not Recovered/Not Resolved]
